FAERS Safety Report 10732695 (Version 2)
Quarter: 2015Q1

REPORT INFORMATION
  Report Type: Spontaneous
  Country: US (occurrence: None)
  Receive Date: 20150120
  Receipt Date: 20150203
  Transmission Date: 20150721
  Serious: Yes (Death, Hospitalization)
  Sender: FDA-Public Use
  Company Number: IPC201501-000009

PATIENT
  Age: 57 Year
  Sex: Female
  Weight: 62.13 kg

DRUGS (4)
  1. BENICAR [Suspect]
     Active Substance: OLMESARTAN MEDOXOMIL
     Indication: HYPERTENSION
     Route: 048
     Dates: start: 2004, end: 20141205
  2. CAPECITABINE. [Suspect]
     Active Substance: CAPECITABINE
     Indication: PANCREATIC CARCINOMA METASTATIC
     Route: 048
     Dates: start: 20141113
  3. BLINDED STUDY DRUG [Suspect]
     Active Substance: INVESTIGATIONAL PRODUCT
     Route: 048
     Dates: start: 20141113
  4. METFORMIN HYDROCHLORIDE (METFORMIN HYDROCHLORIDE) (METFORMIN HYDROCHLORIDE) [Suspect]
     Active Substance: METFORMIN HYDROCHLORIDE
     Indication: DIABETES MELLITUS
     Route: 048
     Dates: start: 2004, end: 20141205

REACTIONS (6)
  - Dehydration [None]
  - Tachycardia [None]
  - Hypotension [None]
  - Acute kidney injury [None]
  - Palmar-plantar erythrodysaesthesia syndrome [None]
  - Mucosal inflammation [None]

NARRATIVE: CASE EVENT DATE: 20141205
